FAERS Safety Report 10153393 (Version 1)
Quarter: 2014Q2

REPORT INFORMATION
  Report Type: Spontaneous
  Country: US (occurrence: US)
  Receive Date: 20140505
  Receipt Date: 20140505
  Transmission Date: 20141212
  Serious: No
  Sender: FDA-Public Use
  Company Number: US-ASTRAZENECA-2013SE73479

PATIENT
  Age: 79 Year
  Sex: Female
  Weight: 49.9 kg

DRUGS (5)
  1. OMPERAZOLE [Suspect]
     Indication: GASTROOESOPHAGEAL REFLUX DISEASE
     Route: 048
     Dates: start: 201004
  2. CITALOPRAM [Interacting]
     Indication: NERVOUS SYSTEM DISORDER
     Route: 065
  3. ATIVAN [Concomitant]
     Indication: NERVOUS SYSTEM DISORDER
     Route: 048
  4. PRAVASTATIN [Concomitant]
     Indication: BLOOD CHOLESTEROL ABNORMAL
     Route: 048
  5. PANTOPRAZOLE [Concomitant]
     Indication: GASTROOESOPHAGEAL REFLUX DISEASE
     Route: 048

REACTIONS (3)
  - Drug interaction [Unknown]
  - Gastrooesophageal reflux disease [Unknown]
  - Fall [Unknown]
